FAERS Safety Report 5247142-9 (Version None)
Quarter: 2007Q1

REPORT INFORMATION
  Report Type: 
  Country: None (occurrence: None)
  Receive Date: 20070221
  Receipt Date: 20070213
  Transmission Date: 20070707
  Serious: Yes (Death, Hospitalization)
  Sender: FDA-Public Use
  Company Number: 163-20785-07011351

PATIENT
  Age: 70 Year
  Sex: Male

DRUGS (2)
  1. THALOMID [Suspect]
     Indication: MULTIPLE MYELOMA
     Dosage: 50 MG, 1 IN 1 D, ORAL, 100 MG, 2 IN 1 D, ORAL
     Route: 048
     Dates: start: 20040401, end: 20050222
  2. THALOMID [Suspect]
     Indication: MULTIPLE MYELOMA
     Dosage: 50 MG, 1 IN 1 D, ORAL, 100 MG, 2 IN 1 D, ORAL
     Route: 048
     Dates: start: 20050331, end: 20061227

REACTIONS (2)
  - CARDIAC FAILURE [None]
  - VENTRICULAR TACHYCARDIA [None]
